FAERS Safety Report 5270512-X (Version None)
Quarter: 2007Q1

REPORT INFORMATION
  Report Type: 
  Country: None (occurrence: None)
  Receive Date: 20070315
  Receipt Date: 20061011
  Transmission Date: 20070707
  Serious: Yes (Life-Threatening, Other)
  Sender: FDA-Public Use
  Company Number: 2006US-03086

PATIENT
  Sex: Female

DRUGS (2)
  1. ISOTRETINOIN [Suspect]
  2. UNSPECIFIED BIRTH CONTROL MEDS. (UNSPECIFIED BIRTH CONTROL MEDS.) [Suspect]

REACTIONS (2)
  - CEREBROVASCULAR ACCIDENT [None]
  - DRUG INTERACTION [None]
